FAERS Safety Report 10376449 (Version 2)
Quarter: 2014Q3

REPORT INFORMATION
  Report Type: Spontaneous
  Country: IT (occurrence: None)
  Receive Date: 20140806
  Receipt Date: 20140811
  Transmission Date: 20150326
  Serious: Yes (Hospitalization)
  Sender: FDA-Public Use
  Company Number: AUR-APL-2014-08258

PATIENT
  Age: 62 Year
  Sex: Male
  Weight: 58 kg

DRUGS (14)
  1. MONOKET (ISOSORBIDE MONONITRATE) TABLET [Concomitant]
  2. ROCEFIN (CEFTRIAXONE SODIUM) POWDER AND SOLVEN FOR SOLUTION FOR INJECTION [Suspect]
     Active Substance: CEFTRIAXONE SODIUM
     Indication: BRONCHITIS
     Route: 030
     Dates: start: 20140314, end: 20140324
  3. LASIX [Concomitant]
     Active Substance: FUROSEMIDE
  4. LUVION /00252501/ (CANRENOIC ACID) TABLET [Concomitant]
  5. RANEXA (RANOLAZINE) PROLONGED-RELEASE TABLET [Concomitant]
  6. ZITHROMAX [Suspect]
     Active Substance: AZITHROMYCIN DIHYDRATE
     Indication: BRONCHITIS
     Route: 048
     Dates: start: 20140325, end: 20140329
  7. ACICLOVIR (ACICLOVIR) [Concomitant]
     Active Substance: ACYCLOVIR
  8. GLUCOPHAGE (METFORMIN HYDROCHLORIDE) COATED TABLET [Concomitant]
  9. CARDIOASPIRIN [Concomitant]
     Active Substance: ASPIRIN
  10. CALCIUM [Concomitant]
     Active Substance: CALCIUM
  11. DELTACORTENE (PREDNISONE) TABLET, 5MG [Concomitant]
     Active Substance: PREDNISONE
  12. SELOKEN /00376902/ (METOPROLOL TARTRATE) TABLET [Concomitant]
  13. LEVOFLOXACIN [Suspect]
     Active Substance: LEVOFLOXACIN
     Indication: BRONCHITIS
     Route: 048
     Dates: start: 20140314, end: 20140324
  14. MINITRAN /00003201/ (GLYCERYL TRINITRATE) PATCH [Concomitant]

REACTIONS (2)
  - Rash maculo-papular [None]
  - Drug hypersensitivity [None]

NARRATIVE: CASE EVENT DATE: 20140328
